FAERS Safety Report 13668050 (Version 8)
Quarter: 2018Q4

REPORT INFORMATION
  Report Type: Spontaneous
  Country: US (occurrence: US)
  Receive Date: 20170620
  Receipt Date: 20181026
  Transmission Date: 20190204
  Serious: No
  Sender: FDA-Public Use
  Company Number: US-PFIZER INC-2017263547

PATIENT
  Age: 55 Year
  Sex: Male

DRUGS (2)
  1. SUTENT [Suspect]
     Active Substance: SUNITINIB MALATE
     Indication: THYROID CANCER
     Dosage: 37.5 MG, CYCLIC (DAILY FOR 21 DAYS)
     Route: 048
     Dates: start: 20160209
  2. SUTENT [Suspect]
     Active Substance: SUNITINIB MALATE
     Dosage: 37.5 MG, DAILY
     Route: 048
     Dates: start: 201602

REACTIONS (8)
  - Product use in unapproved indication [Unknown]
  - Rash [Unknown]
  - Alopecia [Unknown]
  - Insomnia [Unknown]
  - Diarrhoea [Unknown]
  - Dizziness [Unknown]
  - Hypertension [Unknown]
  - Pruritus [Unknown]

NARRATIVE: CASE EVENT DATE: 20160209
